FAERS Safety Report 17296613 (Version 3)
Quarter: 2020Q4

REPORT INFORMATION
  Report Type: Report from Study
  Country: JP (occurrence: JP)
  Receive Date: 20200122
  Receipt Date: 20201025
  Transmission Date: 20210113
  Serious: Yes (Life-Threatening)
  Sender: FDA-Public Use
  Company Number: JP-CELLTRION INC.-2020JP017859

PATIENT

DRUGS (31)
  1. S-1TAIHO [Suspect]
     Active Substance: GIMERACIL\OTERACIL\TEGAFUR
     Dosage: 40 MILLIGRAM, QD
     Route: 048
     Dates: start: 20191223, end: 20200105
  2. TRASTUZUMAB BS FOR I.V. INFUSION [NK] [Suspect]
     Active Substance: TRASTUZUMAB
     Dosage: 300 MILLIGRAM, QD
     Route: 041
     Dates: start: 20191202, end: 20191202
  3. OXALIPLATIN. [Suspect]
     Active Substance: OXALIPLATIN
     Dosage: 120 MILLIGRAM, QD
     Route: 041
     Dates: start: 20191021, end: 20191021
  4. S-1TAIHO [Suspect]
     Active Substance: GIMERACIL\OTERACIL\TEGAFUR
     Dosage: 80 MILLIGRAM, QD
     Route: 048
     Dates: start: 20190729, end: 20190811
  5. S-1TAIHO [Suspect]
     Active Substance: GIMERACIL\OTERACIL\TEGAFUR
     Dosage: 40 MILLIGRAM, QD
     Route: 048
     Dates: start: 20191021, end: 20191103
  6. TRASTUZUMAB BS FOR I.V. INFUSION [NK] [Suspect]
     Active Substance: TRASTUZUMAB
     Dosage: 300 MILLIGRAM, QD
     Route: 041
     Dates: start: 20191021, end: 20191021
  7. OXALIPLATIN. [Suspect]
     Active Substance: OXALIPLATIN
     Dosage: 150 MILLIGRAM, QD
     Route: 041
     Dates: start: 20190729, end: 20190729
  8. OXALIPLATIN. [Suspect]
     Active Substance: OXALIPLATIN
     Dosage: 120 MILLIGRAM, QD
     Route: 041
     Dates: start: 20190930, end: 20190930
  9. S-1TAIHO [Suspect]
     Active Substance: GIMERACIL\OTERACIL\TEGAFUR
     Dosage: 40 MILLIGRAM, QD
     Route: 048
     Dates: start: 20191111, end: 20191124
  10. EMEND [Concomitant]
     Active Substance: APREPITANT
     Indication: PROPHYLAXIS OF NAUSEA AND VOMITING
     Dosage: UNK
     Dates: start: 20190617, end: 20191206
  11. TRASTUZUMAB BS FOR I.V. INFUSION [NK] [Suspect]
     Active Substance: TRASTUZUMAB
     Dosage: 300 MILLIGRAM, QD
     Route: 041
     Dates: start: 20190819, end: 20190819
  12. TRASTUZUMAB BS FOR I.V. INFUSION [NK] [Suspect]
     Active Substance: TRASTUZUMAB
     Dosage: 300 MILLIGRAM, QD
     Route: 041
     Dates: start: 20190909, end: 20190909
  13. OXALIPLATIN. [Suspect]
     Active Substance: OXALIPLATIN
     Dosage: 150 MILLIGRAM, QD
     Route: 041
     Dates: start: 20190709, end: 20190709
  14. S-1TAIHO [Suspect]
     Active Substance: GIMERACIL\OTERACIL\TEGAFUR
     Dosage: 80 MILLIGRAM, QD
     Route: 048
     Dates: start: 20190709, end: 20190722
  15. DEXART [Concomitant]
     Active Substance: DEXAMETHASONE SODIUM PHOSPHATE
     Indication: PROPHYLAXIS OF NAUSEA AND VOMITING
     Dosage: UNK
     Dates: start: 20190617, end: 20191202
  16. TRASTUZUMAB BS FOR I.V. INFUSION [NK] [Suspect]
     Active Substance: TRASTUZUMAB
     Dosage: 300 MILLIGRAM, QD
     Route: 041
     Dates: start: 20190930, end: 20190930
  17. OXALIPLATIN. [Suspect]
     Active Substance: OXALIPLATIN
     Dosage: 120 MILLIGRAM, QD
     Route: 041
     Dates: start: 20190909, end: 20190909
  18. OXALIPLATIN. [Suspect]
     Active Substance: OXALIPLATIN
     Dosage: 120 MILLIGRAM, QD
     Route: 041
     Dates: start: 20191202, end: 20191202
  19. TRASTUZUMAB BS FOR I.V. INFUSION [NK] [Suspect]
     Active Substance: TRASTUZUMAB
     Indication: HER2 POSITIVE GASTRIC CANCER
     Dosage: 450 MILLIGRAM, QD
     Route: 041
     Dates: start: 20190607, end: 20190607
  20. OXALIPLATIN. [Suspect]
     Active Substance: OXALIPLATIN
     Indication: HER2 POSITIVE GASTRIC CANCER
     Dosage: 150 MILLIGRAM, QD
     Route: 041
     Dates: start: 20190617, end: 20190617
  21. OXALIPLATIN. [Suspect]
     Active Substance: OXALIPLATIN
     Dosage: 120 MILLIGRAM, QD
     Route: 041
     Dates: start: 20191111, end: 20191111
  22. S-1TAIHO [Suspect]
     Active Substance: GIMERACIL\OTERACIL\TEGAFUR
     Dosage: 40 MILLIGRAM, QD
     Route: 048
     Dates: start: 20190819, end: 20190901
  23. S-1TAIHO [Suspect]
     Active Substance: GIMERACIL\OTERACIL\TEGAFUR
     Dosage: 40 MILLIGRAM, QD
     Route: 048
     Dates: start: 20190930, end: 20191013
  24. ALOXI [Concomitant]
     Active Substance: PALONOSETRON HYDROCHLORIDE
     Indication: PROPHYLAXIS OF NAUSEA AND VOMITING
     Dosage: UNK
     Dates: start: 20190617, end: 20191202
  25. TRASTUZUMAB BS FOR I.V. INFUSION [NK] [Suspect]
     Active Substance: TRASTUZUMAB
     Dosage: 300 MILLIGRAM, QD
     Route: 041
     Dates: start: 20190709, end: 20190709
  26. TRASTUZUMAB BS FOR I.V. INFUSION [NK] [Suspect]
     Active Substance: TRASTUZUMAB
     Dosage: 300 MILLIGRAM, QD
     Route: 041
     Dates: start: 20190729, end: 20190729
  27. S-1TAIHO [Suspect]
     Active Substance: GIMERACIL\OTERACIL\TEGAFUR
     Dosage: 40 MILLIGRAM, QD
     Route: 048
     Dates: start: 20191202, end: 20191215
  28. TRASTUZUMAB BS FOR I.V. INFUSION [NK] [Suspect]
     Active Substance: TRASTUZUMAB
     Dosage: 300 MILLIGRAM, QD
     Route: 041
     Dates: start: 20191111, end: 20191111
  29. OXALIPLATIN. [Suspect]
     Active Substance: OXALIPLATIN
     Dosage: 150 MILLIGRAM, QD
     Route: 041
     Dates: start: 20190819, end: 20190819
  30. S-1TAIHO [Suspect]
     Active Substance: GIMERACIL\OTERACIL\TEGAFUR
     Indication: HER2 POSITIVE GASTRIC CANCER
     Dosage: 80 MILLIGRAM, QD
     Route: 048
     Dates: start: 20190617, end: 20190630
  31. S-1TAIHO [Suspect]
     Active Substance: GIMERACIL\OTERACIL\TEGAFUR
     Dosage: 40 MILLIGRAM, QD
     Route: 048
     Dates: start: 20190909, end: 20190922

REACTIONS (5)
  - Underdose [Unknown]
  - Neuropathy peripheral [Not Recovered/Not Resolved]
  - White blood cell count decreased [Recovered/Resolved]
  - Diarrhoea [Recovering/Resolving]
  - Product use issue [Unknown]

NARRATIVE: CASE EVENT DATE: 20190709
